FAERS Safety Report 9659985 (Version 1)
Quarter: 2013Q4

REPORT INFORMATION
  Report Type: Spontaneous
  Country: US (occurrence: US)
  Receive Date: 20131031
  Receipt Date: 20131031
  Transmission Date: 20140711
  Serious: No
  Sender: FDA-Public Use
  Company Number: US-ABBVIE-12P-163-1005935-00

PATIENT
  Age: 45 Year
  Sex: Female
  Weight: 72.64 kg

DRUGS (1)
  1. BIAXIN [Suspect]
     Indication: HELICOBACTER INFECTION
     Dates: start: 20121022, end: 20121104

REACTIONS (1)
  - Glossitis [Not Recovered/Not Resolved]
